FAERS Safety Report 23748247 (Version 4)
Quarter: 2025Q1

REPORT INFORMATION
  Report Type: Spontaneous
  Country: US (occurrence: US)
  Receive Date: 20240416
  Receipt Date: 20250204
  Transmission Date: 20250409
  Serious: Yes (Disabling, Other)
  Sender: SANOFI AVENTIS
  Company Number: US-SA-SAC20240409000634

PATIENT
  Age: 47 Year
  Sex: Male

DRUGS (1)
  1. DUPIXENT [Suspect]
     Active Substance: DUPILUMAB
     Indication: Asthma
     Dosage: 300 MG, QOW
     Route: 058

REACTIONS (8)
  - Disability [Unknown]
  - Diabetes mellitus [Unknown]
  - Visual impairment [Unknown]
  - Asthenia [Unknown]
  - Hypoaesthesia [Unknown]
  - Dizziness [Unknown]
  - Asthma [Unknown]
  - Product dose omission issue [Unknown]
